FAERS Safety Report 23614896 (Version 1)
Quarter: 2024Q1

REPORT INFORMATION
  Report Type: Spontaneous
  Country: US (occurrence: US)
  Receive Date: 20240311
  Receipt Date: 20240311
  Transmission Date: 20240409
  Serious: No
  Sender: FDA-Public Use
  Company Number: US-SANOFI-01968223

PATIENT
  Sex: Female

DRUGS (1)
  1. LANTUS SOLOSTAR [Suspect]
     Active Substance: INSULIN GLARGINE
     Indication: Diabetes mellitus
     Dosage: 16 UNITS IN MORNING AND 13 UNITS AT NIGHT, BID

REACTIONS (3)
  - Visual impairment [Unknown]
  - Product storage error [Unknown]
  - Inappropriate schedule of product administration [Unknown]
